FAERS Safety Report 5355848-6 (Version None)
Quarter: 2007Q2

REPORT INFORMATION
  Report Type: 
  Country: None (occurrence: None)
  Receive Date: 20070611
  Receipt Date: 20070611
  Transmission Date: 20071010
  Serious: Yes (Hospitalization)
  Sender: FDA-Public Use
  Company Number: None

PATIENT
  Sex: Female
  Weight: 98.63 kg

DRUGS (4)
  1. DOXORUBICIN HYDROCHLORIDE [Suspect]
     Dosage: 90 MG
  2. CISPLATIN [Suspect]
     Dosage: 100 MG
  3. G-CSF (FILGRASTIM, AMGEN) [Suspect]
     Dosage: 6 MG
  4. TAXOL [Suspect]
     Dosage: 320 MG

REACTIONS (8)
  - DRUG HYPERSENSITIVITY [None]
  - FATIGUE [None]
  - HYPERHIDROSIS [None]
  - NEUTROPENIA [None]
  - PNEUMONIA [None]
  - PULMONARY EMBOLISM [None]
  - PYREXIA [None]
  - TROPONIN INCREASED [None]
